FAERS Safety Report 19028755 (Version 3)
Quarter: 2021Q2

REPORT INFORMATION
  Report Type: Report from Study
  Country: US (occurrence: US)
  Receive Date: 20210319
  Receipt Date: 20210611
  Transmission Date: 20210717
  Serious: Yes (Hospitalization)
  Sender: FDA-Public Use
  Company Number: US-BIOGEN-2021BI00991800

PATIENT
  Sex: Male

DRUGS (23)
  1. CABERGOLINE. [Concomitant]
     Active Substance: CABERGOLINE
     Indication: PRODUCT USED FOR UNKNOWN INDICATION
     Dosage: TAKE ONE TABLET BY MOUTH TWICE, EVERY WEEK ON TUESDAYS AND FRIDAYS.
     Route: 048
  2. VENLAFAXINE HCL [Concomitant]
     Active Substance: VENLAFAXINE HYDROCHLORIDE
     Indication: DEPRESSION
     Route: 048
  3. TYSABRI [Suspect]
     Active Substance: NATALIZUMAB
     Route: 065
     Dates: start: 20120327
  4. TRAZODONE [Suspect]
     Active Substance: TRAZODONE HYDROCHLORIDE
     Indication: PRODUCT USED FOR UNKNOWN INDICATION
     Route: 065
  5. BACLOFEN. [Concomitant]
     Active Substance: BACLOFEN
     Dosage: TAKE ONE TABLET AT BEDTIME AS NEEDED FOR MUSCLE SPASMS
     Route: 048
  6. OMEPRAZOLE. [Concomitant]
     Active Substance: OMEPRAZOLE
     Indication: HYPERCHLORHYDRIA
     Dosage: TAKE AT BEDTIME; ON AN EMPTY STOMACH
     Route: 048
  7. OXYBUTYNIN CHLORIDE. [Concomitant]
     Active Substance: OXYBUTYNIN CHLORIDE
     Indication: HYPERTONIC BLADDER
     Dosage: TAKE ONE TABLET BY MOUTH THREE TIMES A DAY AS NEEDED
     Route: 048
  8. RENACIDIN IRRG SOLN [Concomitant]
     Indication: PRODUCT USED FOR UNKNOWN INDICATION
     Dosage: 30ML UD IRRIGATE 30ML IRRIGATION TWICE A DAY, INSTILL TO BLADDER VIA CATHETER, PLUG CATHETER FOR ...
     Route: 050
  9. SIMVASTATIN. [Concomitant]
     Active Substance: SIMVASTATIN
     Indication: HYPERCHOLESTEROLAEMIA
     Dosage: TAKE ONE HALF TABLET BY MOUTH AT BED TIME, AVOID GRAPEFRUIT AND ITS JUICE WITH THIS DRUG
     Route: 048
  10. SODIUM FLUORIDE. [Concomitant]
     Active Substance: SODIUM FLUORIDE
     Indication: DENTAL DISORDER PROPHYLAXIS
     Dosage: BRUSH SMALL AMOUNT DENTAL TWICE A DAY
     Route: 004
  11. THIAMINE HCL [Concomitant]
     Active Substance: THIAMINE HYDROCHLORIDE
     Indication: NUTRITIONAL SUPPLEMENTATION
     Dosage: TAKE ONE TABLET BY MOUTH EVERY DAY
     Route: 048
  12. MULTIVITAMIN [Concomitant]
     Active Substance: VITAMINS
     Indication: PRODUCT USED FOR UNKNOWN INDICATION
     Route: 065
  13. BACLOFEN. [Concomitant]
     Active Substance: BACLOFEN
     Indication: MUSCLE SPASMS
     Dosage: TAKE ONE TABLET BY MOUTH TWICE A DAY
     Route: 048
  14. METHYLPHENIDATE HYDROCHLORIDE. [Concomitant]
     Active Substance: METHYLPHENIDATE HYDROCHLORIDE
     Indication: DISTURBANCE IN ATTENTION
     Dosage: TAKE ONE TABLET BY MOUTH, EVERY MORNING AND TAKE ONE TABLET EVERYDAY AT 1200 NOON.
     Route: 048
  15. TYSABRI [Suspect]
     Active Substance: NATALIZUMAB
     Indication: MULTIPLE SCLEROSIS
     Route: 065
     Dates: start: 20111017, end: 20120109
  16. CHOLECALCIF [Concomitant]
     Indication: VITAMIN SUPPLEMENTATION
     Dosage: (D3?1,000UNIT) TAKE 2 TABLETS BY MOUTH THREE TIMES A DAY AT 7AM, 3PM AND 9PM
     Route: 048
  17. VITAMIN B COMPLEX/VITAMIN C [Concomitant]
     Active Substance: ASCORBIC ACID\VITAMIN B COMPLEX
     Indication: PRODUCT USED FOR UNKNOWN INDICATION
     Route: 048
  18. POLYETHYLENE GLYCOL [Concomitant]
     Active Substance: POLYETHYLENE GLYCOLS
     Indication: CONSTIPATION
     Dosage: 3350 ORAL PWDR, 510G, TAKE 1 CAPSULE (17 GRAMS) BY MOUTH EVERY OTHER DAY MIX PWDER WITH WATER WIL...
     Route: 048
  19. SILDENAFIL CITRATE. [Concomitant]
     Active Substance: SILDENAFIL CITRATE
     Indication: PRODUCT USED FOR UNKNOWN INDICATION
     Dosage: TAKE ONE TABLET BY MOUTH AS NEEDED ON AN EMPTY STOMACH, 1 HOUR PRIOR TO SEX; NOT TO EXCEED 1 DOSE...
     Route: 048
  20. TYSABRI [Suspect]
     Active Substance: NATALIZUMAB
     Route: 065
     Dates: start: 20210128
  21. ENEMA, PHOSPHATE [Concomitant]
     Indication: GASTROINTESTINAL DISORDER
     Dosage: 4.5 OZ, USE CONTENTS RECTALLY EVERY OTHER DAY (ON MONDAY, WEDNESDAY AND FRIDAY FOR BOWEL ROUTINE)
     Route: 054
  22. KEPPRA [Concomitant]
     Active Substance: LEVETIRACETAM
     Indication: SEIZURE PROPHYLAXIS
     Dosage: 500MG TAB; TAKE ONE AND ONE?HALF TABLETS BY MOUTH TWICE A DAY
     Route: 048
  23. MELATONIN [Concomitant]
     Active Substance: MELATONIN
     Indication: SLEEP DISORDER
     Route: 065

REACTIONS (4)
  - Urinary tract infection enterococcal [Recovered/Resolved]
  - Mental status changes [Recovered/Resolved]
  - Klebsiella infection [Recovered/Resolved]
  - Escherichia urinary tract infection [Recovered/Resolved]
